FAERS Safety Report 13932894 (Version 1)
Quarter: 2017Q3

REPORT INFORMATION
  Report Type: Report from Study
  Country: US (occurrence: US)
  Receive Date: 20170904
  Receipt Date: 20170904
  Transmission Date: 20171127
  Serious: Yes (Hospitalization)
  Sender: FDA-Public Use
  Company Number: US-PFIZER INC-2017309832

PATIENT
  Age: 27 Year
  Sex: Female

DRUGS (1)
  1. SOLU-MEDROL [Suspect]
     Active Substance: METHYLPREDNISOLONE SODIUM SUCCINATE
     Indication: MULTIPLE SCLEROSIS
     Dosage: UNK
     Route: 042

REACTIONS (5)
  - Mood swings [Unknown]
  - Abnormal behaviour [Recovered/Resolved]
  - Insomnia [Unknown]
  - Drug intolerance [Unknown]
  - Agitation [Recovered/Resolved]
